FAERS Safety Report 18534175 (Version 2)
Quarter: 2020Q4

REPORT INFORMATION
  Report Type: Other
  Country: RU (occurrence: RU)
  Receive Date: 20201123
  Receipt Date: 20201126
  Transmission Date: 20210114
  Serious: Yes (Other)
  Sender: FDA-Public Use
  Company Number: RU-ROCHE-2717676

PATIENT

DRUGS (1)
  1. RITUXIMAB. [Suspect]
     Active Substance: RITUXIMAB
     Indication: RHEUMATIC DISORDER
     Route: 041

REACTIONS (10)
  - Intentional product use issue [Unknown]
  - Infusion related reaction [Unknown]
  - Urinary tract infection [Unknown]
  - Upper respiratory tract infection [Unknown]
  - Sepsis [Unknown]
  - Herpes zoster [Unknown]
  - Pneumonia [Unknown]
  - Neutropenia [Unknown]
  - Blood immunoglobulin G decreased [Unknown]
  - Off label use [Unknown]
